FAERS Safety Report 24438208 (Version 1)
Quarter: 2024Q4

REPORT INFORMATION
  Report Type: Spontaneous
  Country: US (occurrence: None)
  Receive Date: 20241012
  Receipt Date: 20241012
  Transmission Date: 20250115
  Serious: No
  Sender: Public
  Company Number: None

PATIENT
  Age: 46 Year
  Sex: Female
  Weight: 85.5 kg

DRUGS (4)
  1. WEGOVY [Suspect]
     Active Substance: SEMAGLUTIDE
     Indication: Weight decreased
     Dates: start: 20240726, end: 20240920
  2. ESOMEPRAZOLE [Concomitant]
     Active Substance: ESOMEPRAZOLE
  3. VITAMIN D [Concomitant]
     Active Substance: VITAMIN D NOS
  4. b12 [Concomitant]

REACTIONS (3)
  - Pancreatitis [None]
  - Insurance issue [None]
  - Therapy interrupted [None]

NARRATIVE: CASE EVENT DATE: 20241008
